FAERS Safety Report 9861418 (Version 3)
Quarter: 2014Q1

REPORT INFORMATION
  Report Type: Spontaneous
  Country: IE (occurrence: IE)
  Receive Date: 20140203
  Receipt Date: 20140328
  Transmission Date: 20141002
  Serious: Yes (Death, Hospitalization)
  Sender: FDA-Public Use
  Company Number: IE-AMGEN-IRLSP2014006177

PATIENT
  Age: 82 Year
  Sex: Female

DRUGS (7)
  1. PROLIA [Suspect]
     Indication: OSTEOPOROSIS
     Dosage: 60 MG, Q6MO
     Route: 058
     Dates: start: 20120614, end: 20131209
  2. VESITIRIM [Concomitant]
     Indication: URINARY INCONTINENCE
     Dosage: 10 MG, QD
     Route: 048
  3. EXELON                             /01383201/ [Concomitant]
     Indication: DEMENTIA
     Dosage: 40 MG, QD
     Route: 048
  4. SEROQUEL [Concomitant]
     Indication: HYPERTENSION
     Dosage: 50 MG, QHS
     Route: 048
  5. LEXAPRO                            /01588501/ [Concomitant]
     Indication: DEPRESSION
     Dosage: 10 MG, QD
     Route: 048
  6. BISOPROLOL [Concomitant]
     Indication: HYPERTENSION
     Dosage: 2.5 MG, QD
     Dates: start: 201312
  7. AMLODIPINE [Concomitant]
     Indication: HYPERTENSION
     Dosage: 10 MG, QD
     Route: 048

REACTIONS (2)
  - Sudden death [Fatal]
  - Urinary tract infection [Recovering/Resolving]
